FAERS Safety Report 7797173-X (Version None)
Quarter: 2011Q4

REPORT INFORMATION
  Report Type: 
  Country: None (occurrence: None)
  Receive Date: 20111005
  Receipt Date: 20110928
  Transmission Date: 20120403
  Serious: Yes (Death)
  Sender: FDA-Public Use
  Company Number: PHHO2011NL16477

PATIENT
  Sex: Male

DRUGS (2)
  1. SANDIMMUNE [Suspect]
     Indication: GRAFT VERSUS HOST DISEASE
     Dosage: UNK
     Dates: end: 20110628
  2. MYCOPHENOLIC ACID [Suspect]
     Indication: GRAFT VERSUS HOST DISEASE
     Dosage: UNK
     Dates: end: 20110628

REACTIONS (2)
  - PNEUMOCOCCAL SEPSIS [None]
  - DISEASE PROGRESSION [None]
